FAERS Safety Report 8417966-5 (Version None)
Quarter: 2012Q2

REPORT INFORMATION
  Report Type: 
  Country: None (occurrence: None)
  Receive Date: 20120531
  Receipt Date: 20120531
  Transmission Date: 20120825
  Serious: Yes (Other)
  Sender: FDA-Public Use
  Company Number: None

PATIENT
  Age: 46 Year
  Sex: Female

DRUGS (1)
  1. TOPIRAMATE [Suspect]
     Dosage: 1 TABLET TWICE DAILY PO
     Route: 048

REACTIONS (4)
  - EYE PAIN [None]
  - VISION BLURRED [None]
  - MYOPIA [None]
  - GLAUCOMA [None]
